FAERS Safety Report 24658662 (Version 3)
Quarter: 2024Q4

REPORT INFORMATION
  Report Type: Report from Study
  Country: CA (occurrence: CA)
  Receive Date: 20241125
  Receipt Date: 20241206
  Transmission Date: 20250115
  Serious: Yes (Other)
  Sender: CELLTRION
  Company Number: CA-CELLTRION INC.-2021CA018099

PATIENT

DRUGS (7)
  1. RITUXIMAB-ABBS [Suspect]
     Active Substance: RITUXIMAB-ABBS
     Indication: Rheumatoid arthritis
     Dosage: 1000 MG
     Route: 042
     Dates: start: 20210203
  2. RITUXIMAB-ABBS [Suspect]
     Active Substance: RITUXIMAB-ABBS
     Dosage: 1000 MG, INF#5
     Route: 042
     Dates: start: 20210223
  3. RITUXIMAB-ABBS [Suspect]
     Active Substance: RITUXIMAB-ABBS
     Dosage: 1000 MG, INF#6
     Route: 042
     Dates: start: 20210224
  4. RITUXIMAB-ABBS [Suspect]
     Active Substance: RITUXIMAB-ABBS
     Dosage: 1000 MG, DAY 1, DAY  15
     Route: 042
     Dates: start: 20210224
  5. ACETAMINOPHEN [Concomitant]
     Active Substance: ACETAMINOPHEN
     Indication: Premedication
     Dosage: 650 MG
     Route: 048
  6. DIPHENHYDRAMINE [Concomitant]
     Active Substance: DIPHENHYDRAMINE
     Indication: Premedication
     Dosage: 50 MG
     Route: 048
  7. METHYLPREDNISOLONE [Concomitant]
     Active Substance: METHYLPREDNISOLONE
     Indication: Premedication
     Dosage: 100 MG
     Route: 042

REACTIONS (12)
  - Rheumatoid arthritis [Unknown]
  - Tooth extraction [Unknown]
  - Joint swelling [Unknown]
  - Pain in extremity [Unknown]
  - Poor venous access [Unknown]
  - Mouth swelling [Unknown]
  - Gingival swelling [Unknown]
  - Ear pain [Unknown]
  - Stomatitis [Unknown]
  - Walking aid user [Unknown]
  - Intentional dose omission [Unknown]
  - Off label use [Unknown]

NARRATIVE: CASE EVENT DATE: 20230622
